FAERS Safety Report 9688570 (Version 1)
Quarter: 2013Q4

REPORT INFORMATION
  Report Type: Spontaneous
  Country: PT (occurrence: PT)
  Receive Date: 20131114
  Receipt Date: 20131114
  Transmission Date: 20140711
  Serious: Yes (Other)
  Sender: FDA-Public Use
  Company Number: PT-ROCHE-1301593

PATIENT
  Age: 47 Year
  Sex: Female
  Weight: 80 kg

DRUGS (5)
  1. HERCEPTIN [Suspect]
     Indication: BREAST CANCER
     Route: 042
     Dates: start: 20131028
  2. RANITIDINE [Concomitant]
     Indication: PREMEDICATION
     Route: 042
     Dates: start: 20131028
  3. ONDANSETRON [Concomitant]
     Indication: PREMEDICATION
     Route: 042
     Dates: start: 20131028
  4. DEXAMETHASONE [Concomitant]
     Indication: PREMEDICATION
     Route: 042
     Dates: start: 20131028
  5. DOCETAXEL [Concomitant]
     Route: 042

REACTIONS (3)
  - Chills [Recovered/Resolved]
  - Headache [Recovered/Resolved]
  - Sensation of heaviness [Recovered/Resolved]
